FAERS Safety Report 6094921-4 (Version None)
Quarter: 2009Q1

REPORT INFORMATION
  Report Type: 
  Country: None (occurrence: None)
  Receive Date: 20090227
  Receipt Date: 20090218
  Transmission Date: 20090719
  Serious: Yes (Hospitalization)
  Sender: FDA-Public Use
  Company Number: CZ-JNJFOC-20090205127

PATIENT
  Sex: Male

DRUGS (3)
  1. REMICADE [Suspect]
     Route: 042
  2. REMICADE [Suspect]
     Indication: PSORIASIS
     Dosage: 100 MG/VIAL
     Route: 042
  3. KETONAL [Concomitant]
     Dosage: 1 TABLET DAILY
     Route: 048

REACTIONS (1)
  - TESTICULAR SEMINOMA (PURE) [None]
